FAERS Safety Report 25974267 (Version 1)
Quarter: 2025Q4

REPORT INFORMATION
  Report Type: Spontaneous
  Country: EU (occurrence: EU)
  Receive Date: 20251029
  Receipt Date: 20251029
  Transmission Date: 20260118
  Serious: Yes (Disabling, Other)
  Sender: AMERICAN REGENT
  Company Number: EU-AMERICAN REGENT INC-2025003919

PATIENT
  Age: 54 Year
  Sex: Male

DRUGS (1)
  1. FERINJECT [Suspect]
     Active Substance: FERRIC CARBOXYMALTOSE
     Indication: Haemoglobin decreased
     Dosage: 1 GRAM
     Route: 042
     Dates: start: 20250805, end: 20250806

REACTIONS (2)
  - Skin discolouration [Not Recovered/Not Resolved]
  - Administration site extravasation [Not Recovered/Not Resolved]

NARRATIVE: CASE EVENT DATE: 20250805
